FAERS Safety Report 5230322-6 (Version None)
Quarter: 2007Q1

REPORT INFORMATION
  Report Type: 
  Country: None (occurrence: None)
  Receive Date: 20070206
  Receipt Date: 20070202
  Transmission Date: 20070707
  Serious: Yes (Other)
  Sender: FDA-Public Use
  Company Number: US-GLAXOSMITHKLINE-A0637916A

PATIENT
  Sex: Female

DRUGS (1)
  1. DEBROX DROPS [Suspect]
     Route: 001
     Dates: start: 20070126

REACTIONS (5)
  - DEAFNESS [None]
  - DIZZINESS [None]
  - HEADACHE [None]
  - IMPAIRED DRIVING ABILITY [None]
  - NAUSEA [None]
